FAERS Safety Report 12658589 (Version 1)
Quarter: 2016Q3

REPORT INFORMATION
  Report Type: Spontaneous
  Country: DK (occurrence: DK)
  Receive Date: 20160817
  Receipt Date: 20160817
  Transmission Date: 20161109
  Serious: Yes (Other)
  Sender: FDA-Public Use
  Company Number: DK-AUROBINDO-AUR-APL-2016-10341

PATIENT
  Age: 85 Year
  Sex: Female

DRUGS (5)
  1. OXAZEPAM. [Concomitant]
     Active Substance: OXAZEPAM
     Indication: PRODUCT USED FOR UNKNOWN INDICATION
     Dosage: 7.5 MG, 3 TIMES A DAY
     Route: 065
  2. PIVMECILLINAM [Concomitant]
     Active Substance: PENICILLIN
     Indication: URINARY TRACT INFECTION
     Dosage: DAY 4 OF HOSPITALISATION
     Route: 065
  3. CONTALGIN [Concomitant]
     Active Substance: MORPHINE SULFATE
     Indication: BACK PAIN
     Dosage: 10 MG, TWO TIMES A DAY
     Route: 065
  4. TRAMADOL. [Suspect]
     Active Substance: TRAMADOL
     Indication: PAIN
     Dosage: 100 MG, FOUR TIMES/DAY
     Route: 065
  5. CIPROFLOXACIN. [Concomitant]
     Active Substance: CIPROFLOXACIN
     Indication: URINARY TRACT INFECTION
     Route: 065

REACTIONS (7)
  - Tachyphrenia [Unknown]
  - Withdrawal syndrome [Unknown]
  - Acute psychosis [Unknown]
  - Hallucination, visual [Recovered/Resolved]
  - Pain [Unknown]
  - Confusional state [Unknown]
  - Urinary incontinence [Unknown]
